FAERS Safety Report 26080710 (Version 1)
Quarter: 2025Q4

REPORT INFORMATION
  Report Type: Spontaneous
  Country: CN (occurrence: CN)
  Receive Date: 20251124
  Receipt Date: 20251124
  Transmission Date: 20260118
  Serious: Yes (Hospitalization)
  Sender: Kenvue
  Company Number: CN-KENVUE-20251107249

PATIENT
  Age: 49 Year
  Weight: 70 kg

DRUGS (1)
  1. CHILDRENS MOTRIN [Suspect]
     Active Substance: IBUPROFEN
     Indication: Antipyresis
     Dosage: 0.2 GRAM, ONCE A DAY (10 ML ONCE A DAY VIA GASTRIC TUBE FEEDING)

REACTIONS (2)
  - Off label use [Unknown]
  - Transaminases increased [Recovering/Resolving]
